FAERS Safety Report 5268044-8 (Version None)
Quarter: 2007Q1

REPORT INFORMATION
  Report Type: 
  Country: None (occurrence: None)
  Receive Date: 20070316
  Receipt Date: 20070316
  Transmission Date: 20070707
  Serious: Yes (Life-Threatening)
  Sender: FDA-Public Use
  Company Number: None

PATIENT
  Sex: Male
  Weight: 67.6 kg

DRUGS (5)
  1. HYDROMORPHONE HCL [Suspect]
     Indication: LEG AMPUTATION
     Dosage: 6 MG + 4 MG Q2H IV
     Route: 042
     Dates: start: 20060906, end: 20060909
  2. HYDROMORPHONE HCL [Suspect]
     Indication: PROCEDURAL PAIN
     Dosage: 6 MG + 4 MG Q2H IV
     Route: 042
     Dates: start: 20060906, end: 20060909
  3. FENTANYL [Suspect]
     Indication: LEG AMPUTATION
     Dosage: 1 PATCH (TD) Q72H
     Dates: start: 20060824, end: 20060909
  4. FENTANYL [Suspect]
     Indication: PROCEDURAL PAIN
     Dosage: 1 PATCH (TD) Q72H
     Dates: start: 20060824, end: 20060909
  5. OLANZAPINE [Concomitant]

REACTIONS (5)
  - DEPRESSED LEVEL OF CONSCIOUSNESS [None]
  - DIALYSIS [None]
  - HYPOTENSION [None]
  - RESPIRATORY DEPRESSION [None]
  - THERAPEUTIC RESPONSE DECREASED [None]
